FAERS Safety Report 23391553 (Version 1)
Quarter: 2024Q1

REPORT INFORMATION
  Report Type: Other
  Country: CN (occurrence: None)
  Receive Date: 20240111
  Receipt Date: 20240111
  Transmission Date: 20240410
  Serious: Yes (Other)
  Sender: FDA-Public Use
  Company Number: CN-ROCHE-3486358

PATIENT

DRUGS (12)
  1. ATEZOLIZUMAB [Suspect]
     Active Substance: ATEZOLIZUMAB
     Indication: Small cell lung cancer extensive stage
     Route: 042
  2. BEVACIZUMAB [Suspect]
     Active Substance: BEVACIZUMAB
     Indication: Small cell lung cancer extensive stage
     Route: 042
  3. ETOPOSIDE [Suspect]
     Active Substance: ETOPOSIDE
     Indication: Small cell lung cancer extensive stage
     Route: 042
  4. ZIMBERELIMAB [Suspect]
     Active Substance: ZIMBERELIMAB
     Indication: Small cell lung cancer extensive stage
     Route: 042
  5. DURVALUMAB [Suspect]
     Active Substance: DURVALUMAB
     Indication: Small cell lung cancer extensive stage
     Route: 042
  6. CATEQUENTINIB [Suspect]
     Active Substance: CATEQUENTINIB
     Indication: Small cell lung cancer extensive stage
     Route: 042
  7. TISLELIZUMAB [Suspect]
     Active Substance: TISLELIZUMAB
     Indication: Small cell lung cancer extensive stage
     Route: 042
  8. SERPLULIMAB [Suspect]
     Active Substance: SERPLULIMAB
     Indication: Small cell lung cancer extensive stage
     Route: 042
  9. PEMBROLIZUMAB [Suspect]
     Active Substance: PEMBROLIZUMAB
     Indication: Small cell lung cancer extensive stage
     Route: 042
  10. CAMRELIZUMAB [Suspect]
     Active Substance: CAMRELIZUMAB
     Indication: Small cell lung cancer extensive stage
     Route: 042
  11. SINTILIMAB [Suspect]
     Active Substance: SINTILIMAB
     Indication: Small cell lung cancer extensive stage
     Route: 042
  12. CISPLATIN [Suspect]
     Active Substance: CISPLATIN
     Indication: Small cell lung cancer extensive stage
     Route: 042

REACTIONS (32)
  - Anaemia [Unknown]
  - Febrile neutropenia [Unknown]
  - Lymphocyte count increased [Unknown]
  - Neutrophil count decreased [Unknown]
  - Platelet count decreased [Unknown]
  - White blood cell count decreased [Unknown]
  - Hepatitis [Unknown]
  - Myositis [Unknown]
  - Pneumonia [Unknown]
  - Abdominal distension [Unknown]
  - Alopecia [Unknown]
  - Alanine aminotransferase increased [Unknown]
  - Aspartate aminotransferase increased [Unknown]
  - Asthenia [Unknown]
  - Conjunctivitis [Unknown]
  - Constipation [Unknown]
  - Diarrhoea [Unknown]
  - Dysphagia [Unknown]
  - Infusion related reaction [Unknown]
  - Nausea [Unknown]
  - Amylase increased [Unknown]
  - Embolism [Unknown]
  - Dizziness [Unknown]
  - Vomiting [Unknown]
  - Enteritis [Unknown]
  - Hyperthyroidism [Unknown]
  - Hypophysitis [Unknown]
  - Hypothyroidism [Unknown]
  - Interstitial lung disease [Unknown]
  - Myocarditis [Unknown]
  - Pruritus [Unknown]
  - Rash [Unknown]
